FAERS Safety Report 7499679-X (Version None)
Quarter: 2011Q2

REPORT INFORMATION
  Report Type: 
  Country: None (occurrence: None)
  Receive Date: 20110524
  Receipt Date: 20110514
  Transmission Date: 20111010
  Serious: Yes (Other)
  Sender: FDA-Public Use
  Company Number: AR-ROCHE-730389

PATIENT
  Sex: Female
  Weight: 73 kg

DRUGS (8)
  1. TOCILIZUMAB [Suspect]
     Route: 042
     Dates: end: 20100901
  2. FOLIC ACID [Concomitant]
  3. TOCILIZUMAB [Suspect]
     Dosage: DOSE: 600
     Route: 042
     Dates: start: 20100712
  4. TOCILIZUMAB [Suspect]
     Dosage: DOSE: 600
     Route: 042
     Dates: start: 20100412
  5. TOCILIZUMAB [Suspect]
     Dosage: DOSE: 600
     Route: 042
     Dates: start: 20100507
  6. METHOTREXATE [Concomitant]
  7. TOCILIZUMAB [Suspect]
     Dosage: DOSE: 600DOSE: 600
     Route: 042
     Dates: start: 20100607
  8. TOCILIZUMAB [Suspect]
     Dosage: FREQUENCY REPORTED AS MONTHLY
     Route: 042
     Dates: start: 20090901

REACTIONS (1)
  - BLADDER CANCER [None]
